FAERS Safety Report 10996862 (Version 1)
Quarter: 2015Q2

REPORT INFORMATION
  Report Type: Spontaneous
  Country: US (occurrence: None)
  Receive Date: 20150407
  Receipt Date: 20150407
  Transmission Date: 20150821
  Serious: Yes (Other)
  Sender: FDA-Public Use
  Company Number: None

PATIENT
  Age: 70 Year
  Sex: Female

DRUGS (1)
  1. ADVAIR DISKUS [Suspect]
     Active Substance: FLUTICASONE PROPIONATE\SALMETEROL XINAFOATE
     Indication: CHRONIC OBSTRUCTIVE PULMONARY DISEASE
     Dosage: TWO PUFFS TWICE DAILY TAKEN BY MOUTH
     Route: 048
     Dates: start: 20150401, end: 20150406

REACTIONS (4)
  - Drug ineffective [None]
  - Oropharyngeal pain [None]
  - Chest discomfort [None]
  - Laryngitis [None]

NARRATIVE: CASE EVENT DATE: 20150406
